FAERS Safety Report 9098054 (Version 2)
Quarter: 2013Q1

REPORT INFORMATION
  Report Type: Spontaneous
  Country: HU (occurrence: HU)
  Receive Date: 20130213
  Receipt Date: 20130220
  Transmission Date: 20140127
  Serious: Yes (Hospitalization)
  Sender: FDA-Public Use
  Company Number: HU-SANOFI-AVENTIS-2013SA011052

PATIENT
  Age: 47 Year
  Sex: Female
  Weight: 62 kg

DRUGS (10)
  1. CLEXANE [Suspect]
     Indication: PROPHYLAXIS
     Route: 058
     Dates: start: 20130129, end: 20130204
  2. MEDROL [Interacting]
     Indication: NEPHROTIC SYNDROME
     Route: 048
  3. CORTICOSTEROID NOS [Concomitant]
     Indication: NEPHROTIC SYNDROME
  4. ROSUVASTATIN [Concomitant]
  5. NOACID [Concomitant]
  6. MAGNE-B6 [Concomitant]
  7. PYRIDOXINE [Concomitant]
  8. KALDYUM [Concomitant]
  9. SORBIFER DURULES [Concomitant]
  10. ALGOPYRIN [Concomitant]
     Route: 042
     Dates: start: 20130130

REACTIONS (4)
  - Extravasation blood [Recovering/Resolving]
  - Drug interaction [Recovering/Resolving]
  - Conjunctival haemorrhage [Recovering/Resolving]
  - Post procedural haematoma [Recovering/Resolving]
